FAERS Safety Report 6925503-7 (Version None)
Quarter: 2010Q3

REPORT INFORMATION
  Report Type: 
  Country: None (occurrence: None)
  Receive Date: 20100810
  Receipt Date: 20100804
  Transmission Date: 20110219
  Serious: Yes (Death, Hospitalization)
  Sender: FDA-Public Use
  Company Number: 2010SP042383

PATIENT
  Age: 58 Year
  Sex: Male

DRUGS (10)
  1. TEMODAL [Suspect]
     Indication: GLIOBLASTOMA
     Dosage: 150 MG/M2; PO, 50 MG/M2; PO
     Route: 048
     Dates: start: 20050519, end: 20050608
  2. TEMODAL [Suspect]
     Indication: GLIOBLASTOMA
     Dosage: 150 MG/M2; PO, 50 MG/M2; PO
     Route: 048
     Dates: start: 20050609, end: 20050616
  3. INDOMETHACIN [Suspect]
     Indication: GLIOBLASTOMA
     Dosage: 25 MG;BID
     Dates: start: 20050519, end: 20050626
  4. DEXAMETHASONE [Concomitant]
  5. ESOMEPRAZOLE MAGNESIUM [Concomitant]
  6. TROPISETRON [Concomitant]
  7. TRIMETHOPRIM [Concomitant]
  8. LEVOTHYROXINE SODIUM [Concomitant]
  9. TRIMETHOPRIM [Concomitant]
  10. SULFAMETHOXAZOL [Concomitant]

REACTIONS (2)
  - HEPATITIS [None]
  - THROMBOCYTOPENIA [None]
